FAERS Safety Report 5016942-2 (Version None)
Quarter: 2006Q2

REPORT INFORMATION
  Report Type: 
  Country: None (occurrence: None)
  Receive Date: 20060526
  Receipt Date: 20060518
  Transmission Date: 20061013
  Serious: Yes (Hospitalization)
  Sender: FDA-Public Use
  Company Number: US017048

PATIENT
  Age: 45 Year
  Sex: Female
  Weight: 79.8331 kg

DRUGS (8)
  1. PROVIGIL [Suspect]
     Indication: DEPRESSION
     Dosage: 50 MG QD ORAL
     Route: 048
     Dates: start: 20060101, end: 20060309
  2. CLONAZEPAM [Concomitant]
  3. TEMAZEPAM [Concomitant]
  4. EFFEXOR [Concomitant]
  5. LUNESTA [Concomitant]
  6. PROCHLORPERAZINE [Concomitant]
  7. LIPITOR [Concomitant]
  8. XANAX [Concomitant]

REACTIONS (6)
  - ANXIETY [None]
  - CONDITION AGGRAVATED [None]
  - HEADACHE [None]
  - HYPERTHYROIDISM [None]
  - INSOMNIA [None]
  - PANIC ATTACK [None]
